FAERS Safety Report 6477203-8 (Version None)
Quarter: 2009Q4

REPORT INFORMATION
  Report Type: 
  Country: None (occurrence: None)
  Receive Date: 20091207
  Receipt Date: 20091124
  Transmission Date: 20100525
  Serious: Yes (Other)
  Sender: FDA-Public Use
  Company Number: PHHY2009MX52065

PATIENT
  Age: 6 Year
  Sex: Male

DRUGS (1)
  1. TEGRETOL [Suspect]
     Indication: EPILEPSY
     Dosage: 10ML (2G/100ML MG) DAILY
     Route: 048
     Dates: end: 20091101

REACTIONS (3)
  - CONVULSION [None]
  - NASOPHARYNGITIS [None]
  - TREMOR [None]
